FAERS Safety Report 9602588 (Version 2)
Quarter: 2013Q4

REPORT INFORMATION
  Report Type: Spontaneous
  Country: IT (occurrence: IT)
  Receive Date: 20131007
  Receipt Date: 20131210
  Transmission Date: 20140711
  Serious: Yes (Other)
  Sender: FDA-Public Use
  Company Number: IT-SA-2013SA096995

PATIENT
  Age: 88 Year
  Sex: Female

DRUGS (10)
  1. FUROSEMIDE [Suspect]
     Indication: PRODUCT USED FOR UNKNOWN INDICATION
     Route: 048
     Dates: start: 20130101, end: 20130710
  2. NITROCOR [Suspect]
     Indication: PRODUCT USED FOR UNKNOWN INDICATION
     Route: 062
     Dates: start: 20130101, end: 20130710
  3. PLENDIL [Suspect]
     Indication: PRODUCT USED FOR UNKNOWN INDICATION
     Route: 048
     Dates: start: 20130101, end: 20130710
  4. LENDORMIN [Suspect]
     Indication: PRODUCT USED FOR UNKNOWN INDICATION
     Dosage: STRENGTH:0.25MG
     Route: 048
     Dates: start: 20130101, end: 20130710
  5. SIMVASTATIN [Concomitant]
     Dosage: STRENGTH: 20MG
  6. PANTECTA [Concomitant]
     Dosage: STRENGTH: 40 MG
  7. SAMYR [Concomitant]
     Dosage: STRENGTH: 200MG
  8. CALCIUM CARBONATE/COLECALCIFEROL [Concomitant]
     Dosage: STRENGTH: 500 MG/400 IU
  9. TRAMADOL HYDROCHLORIDE [Concomitant]
     Dosage: STRENGTH: 50MG
  10. ASA [Concomitant]

REACTIONS (1)
  - Syncope [Recovering/Resolving]
